FAERS Safety Report 13673302 (Version 2)
Quarter: 2017Q3

REPORT INFORMATION
  Report Type: Spontaneous
  Country: US (occurrence: US)
  Receive Date: 20170621
  Receipt Date: 20170705
  Transmission Date: 20171127
  Serious: Yes (Death, Hospitalization)
  Sender: FDA-Public Use
  Company Number: US-CONCORDIA PHARMACEUTICALS INC.-GSH201706-003712

PATIENT
  Sex: Female
  Weight: 3.3 kg

DRUGS (1)
  1. KAYEXALATE [Suspect]
     Active Substance: SODIUM POLYSTYRENE SULFONATE
     Indication: HYPERKALAEMIA

REACTIONS (3)
  - Neonatal asphyxia [Fatal]
  - Foreign body aspiration [Fatal]
  - Traumatic lung injury [Not Recovered/Not Resolved]
